FAERS Safety Report 16843728 (Version 1)
Quarter: 2019Q4

REPORT INFORMATION
  Report Type: Spontaneous
  Country: US (occurrence: US)
  Receive Date: 20190923
  Receipt Date: 20190923
  Transmission Date: 20200122
  Serious: No
  Sender: FDA-Public Use
  Company Number: None

PATIENT
  Age: 52 Year
  Sex: Male
  Weight: 105.75 kg

DRUGS (2)
  1. ALPRAZOLAM. [Suspect]
     Active Substance: ALPRAZOLAM
     Indication: ANXIETY
     Dosage: ?          QUANTITY:1 TABLET(S);?
     Route: 048
  2. TYLENOL OR ADVIL AS NEEDED [Concomitant]

REACTIONS (6)
  - Decreased appetite [None]
  - Product substitution issue [None]
  - Anxiety [None]
  - Fear [None]
  - Tachyphrenia [None]
  - Insomnia [None]
